FAERS Safety Report 4437734-9 (Version None)
Quarter: 2004Q3

REPORT INFORMATION
  Report Type: 
  Country: None (occurrence: None)
  Receive Date: 20040827
  Receipt Date: 20040811
  Transmission Date: 20050211
  Serious: Yes (Hospitalization, Other)
  Sender: FDA-Public Use
  Company Number: 8006338

PATIENT
  Age: 34 Year
  Sex: Female

DRUGS (5)
  1. KEPPRA [Suspect]
     Indication: EPILEPSY
     Dosage: 2500 MG PC
     Dates: end: 20040501
  2. CARBAMAZEPINE [Concomitant]
  3. FRISIUM [Concomitant]
  4. PHENOBARBITAL TAB [Concomitant]
  5. LAMICTAL [Concomitant]

REACTIONS (9)
  - AGGRESSION [None]
  - CONDITION AGGRAVATED [None]
  - CONVULSION [None]
  - HYPONATRAEMIA [None]
  - PANCYTOPENIA [None]
  - STATUS EPILEPTICUS [None]
  - TONIC CONVULSION [None]
  - WEIGHT DECREASED [None]
  - WEIGHT INCREASED [None]
